FAERS Safety Report 8575800-7 (Version None)
Quarter: 2012Q3

REPORT INFORMATION
  Report Type: 
  Country: None (occurrence: None)
  Receive Date: 20120807
  Receipt Date: 20120725
  Transmission Date: 20120928
  Serious: Yes (Other)
  Sender: FDA-Public Use
  Company Number: TH-SANOFI-AVENTIS-2011SA065360

PATIENT
  Age: 54 Year
  Sex: Male
  Weight: 33.9 kg

DRUGS (6)
  1. ISONIAZID [Suspect]
     Route: 065
     Dates: start: 20110627
  2. RIFAMPICIN [Suspect]
     Indication: PULMONARY TUBERCULOSIS
     Route: 065
     Dates: start: 20110822, end: 20111002
  3. MOXIFLOXACIN [Suspect]
     Indication: PULMONARY TUBERCULOSIS
     Route: 065
     Dates: start: 20110822, end: 20111002
  4. MOXIFLOXACIN [Suspect]
     Route: 065
     Dates: start: 20110627
  5. ISONIAZID [Suspect]
     Indication: PULMONARY TUBERCULOSIS
     Route: 065
     Dates: start: 20110822, end: 20111002
  6. RIFAMPICIN [Suspect]
     Route: 065
     Dates: start: 20110627

REACTIONS (2)
  - BLOOD BILIRUBIN INCREASED [None]
  - COLOUR BLINDNESS [None]
